FAERS Safety Report 10083601 (Version 1)
Quarter: 2014Q2

REPORT INFORMATION
  Report Type: Spontaneous
  Country: US (occurrence: None)
  Receive Date: 20140416
  Receipt Date: 20140416
  Transmission Date: 20141212
  Serious: Yes (Disabling)
  Sender: FDA-Public Use
  Company Number: None

PATIENT
  Age: 70 Year
  Sex: Female
  Weight: 64.41 kg

DRUGS (2)
  1. AZITHROMYCIN [Suspect]
     Indication: PRODUCT USED FOR UNKNOWN INDICATION
     Dosage: 6 TABLETS FIRST DAY 2 TABLETS 2-5(DAYS OF 1 TABLET)
     Dates: start: 20130515, end: 20130520
  2. MOEXIPRIL(FROM BLOOD PRESSURE) [Concomitant]

REACTIONS (2)
  - Bundle branch block right [None]
  - Chest pain [None]
